FAERS Safety Report 5804619-2 (Version None)
Quarter: 2008Q3

REPORT INFORMATION
  Report Type: 
  Country: None (occurrence: None)
  Receive Date: 20080707
  Receipt Date: 20080707
  Transmission Date: 20090109
  Serious: No
  Sender: FDA-Public Use
  Company Number: None

PATIENT
  Sex: Female
  Weight: 88.1 kg

DRUGS (3)
  1. TEMOZOLOMIDE [Suspect]
     Dosage: 4650 MG
  2. DECADRON [Concomitant]
  3. DILANTIN [Concomitant]

REACTIONS (2)
  - NEUTROPHIL COUNT DECREASED [None]
  - PLATELET COUNT DECREASED [None]
